FAERS Safety Report 20166152 (Version 1)
Quarter: 2021Q4

REPORT INFORMATION
  Report Type: Spontaneous
  Country: US (occurrence: None)
  Receive Date: 20211208
  Receipt Date: 20211208
  Transmission Date: 20220303
  Serious: Yes (Other)
  Sender: FDA-Public Use
  Company Number: None

PATIENT
  Age: 59 Year
  Sex: Male
  Weight: 114.52 kg

DRUGS (9)
  1. EVEROLIMUS [Suspect]
     Active Substance: EVEROLIMUS
     Indication: Colon cancer
     Dosage: FREQUENCY : DAILY;?
     Route: 048
     Dates: start: 20211117, end: 20211208
  2. METFORMIN [Concomitant]
     Active Substance: METFORMIN HYDROCHLORIDE
  3. LANTUS [Concomitant]
     Active Substance: INSULIN GLARGINE
  4. ASPIRIN [Concomitant]
     Active Substance: ASPIRIN
  5. LOSARTAN [Concomitant]
     Active Substance: LOSARTAN
  6. ELIQUIS [Concomitant]
     Active Substance: APIXABAN
  7. GLIPIZIDE [Concomitant]
     Active Substance: GLIPIZIDE
  8. FLUOXETINE [Concomitant]
     Active Substance: FLUOXETINE HYDROCHLORIDE
  9. ATORVASTATIN [Concomitant]
     Active Substance: ATORVASTATIN

REACTIONS (2)
  - Swelling face [None]
  - Cough [None]

NARRATIVE: CASE EVENT DATE: 20211208
